FAERS Safety Report 8460397-2 (Version None)
Quarter: 2012Q2

REPORT INFORMATION
  Report Type: 
  Country: None (occurrence: None)
  Receive Date: 20120622
  Receipt Date: 20120613
  Transmission Date: 20120825
  Serious: Yes (Hospitalization, Other)
  Sender: FDA-Public Use
  Company Number: US-ASTRAZENECA-2011SE40833

PATIENT
  Age: 56 Year
  Sex: Female
  Weight: 60.8 kg

DRUGS (29)
  1. SEROQUEL [Suspect]
     Indication: HALLUCINATION
     Route: 048
  2. SEROQUEL [Suspect]
     Indication: DEPRESSION
     Route: 048
  3. SEROQUEL [Suspect]
     Route: 048
  4. SEROQUEL [Suspect]
     Route: 048
  5. SEROQUEL [Suspect]
     Route: 048
  6. SEROQUEL [Suspect]
     Route: 048
  7. TRICOR [Concomitant]
  8. RITALIN [Concomitant]
  9. SEROQUEL [Suspect]
     Indication: NIGHTMARE
     Route: 048
  10. SEROQUEL [Suspect]
     Route: 048
  11. SEROQUEL [Suspect]
     Indication: SCHIZOPHRENIA
     Route: 048
  12. SEROQUEL [Suspect]
     Route: 048
  13. SEROQUEL [Suspect]
     Route: 048
  14. SEROQUEL [Suspect]
     Route: 048
  15. BACLOFEN [Concomitant]
  16. CYMBALTA [Concomitant]
  17. LAMISIL [Concomitant]
  18. LASIX [Concomitant]
     Dosage: PRN
  19. SEROQUEL [Suspect]
     Indication: BIPOLAR DISORDER
     Route: 048
  20. SEROQUEL [Suspect]
     Route: 048
  21. BYSTOLIC [Concomitant]
  22. TOPAMAX [Concomitant]
  23. LIPITOR [Concomitant]
  24. RESTASIS [Concomitant]
  25. SEROQUEL [Suspect]
     Indication: SLEEP DISORDER
     Route: 048
  26. SEROQUEL [Suspect]
     Route: 048
  27. SEROQUEL [Suspect]
     Route: 048
  28. SEROQUEL [Suspect]
     Route: 048
  29. VALIUM [Concomitant]

REACTIONS (8)
  - NIGHTMARE [None]
  - DRUG DOSE OMISSION [None]
  - AMNESIA [None]
  - INSOMNIA [None]
  - SUICIDAL IDEATION [None]
  - HALLUCINATION [None]
  - FALL [None]
  - WEIGHT INCREASED [None]
